FAERS Safety Report 22035000 (Version 1)
Quarter: 2023Q1

REPORT INFORMATION
  Report Type: Other
  Country: None (occurrence: US)
  Receive Date: 20230224
  Receipt Date: 20230224
  Transmission Date: 20230417
  Serious: Yes (Other)
  Sender: FDA-Public Use
  Company Number: US-B.Braun Medical Inc.-2138326

PATIENT
  Age: 79 Year
  Sex: Female

DRUGS (10)
  1. RINGERS SOLUTION [Suspect]
     Active Substance: CALCIUM CHLORIDE\POTASSIUM CHLORIDE\SODIUM CHLORIDE
     Indication: Renal injury
     Route: 042
  2. ASPIRIN [Concomitant]
     Active Substance: ASPIRIN
  3. HYDRALAZINE [Concomitant]
     Active Substance: HYDRALAZINE HYDROCHLORIDE
  4. METOPROLOL [Concomitant]
     Active Substance: METOPROLOL
  5. Tartrate [Concomitant]
  6. AMLODIPINE [Concomitant]
     Active Substance: AMLODIPINE BESYLATE
  7. ATORVASTATIN [Concomitant]
     Active Substance: ATORVASTATIN
  8. BACLOFEN [Concomitant]
     Active Substance: BACLOFEN
  9. CEFTRIAXONE [Suspect]
     Active Substance: CEFTRIAXONE
  10. AZITHROMYCIN [Suspect]
     Active Substance: AZITHROMYCIN

REACTIONS (1)
  - Drug ineffective [Unknown]
